FAERS Safety Report 5091467-7 (Version None)
Quarter: 2006Q3

REPORT INFORMATION
  Report Type: 
  Country: None (occurrence: None)
  Receive Date: 20060829
  Receipt Date: 20060823
  Transmission Date: 20061208
  Serious: Yes (Other)
  Sender: FDA-Public Use
  Company Number: BR-GLAXOSMITHKLINE-A0618155A

PATIENT
  Age: 31 Year
  Sex: Male
  Weight: 70 kg

DRUGS (3)
  1. PAXIL CR [Suspect]
     Indication: PANIC DISORDER
     Dosage: 25MG PER DAY
     Route: 048
     Dates: start: 20050101
  2. DICLOFENAC [Concomitant]
     Dates: start: 20060821
  3. CLONAZEPAM [Concomitant]
     Dosage: 5DPH PER DAY
     Dates: start: 20050101

REACTIONS (3)
  - DYSGEUSIA [None]
  - EAR HAEMORRHAGE [None]
  - EPISTAXIS [None]
